FAERS Safety Report 5851615-5 (Version None)
Quarter: 2008Q3

REPORT INFORMATION
  Report Type: 
  Country: None (occurrence: None)
  Receive Date: 20080820
  Receipt Date: 20080805
  Transmission Date: 20090109
  Serious: Yes (Death, Other)
  Sender: FDA-Public Use
  Company Number: JP-GENENTECH-266184

PATIENT
  Sex: Male
  Weight: 53 kg

DRUGS (4)
  1. AVASTIN [Suspect]
     Indication: RECTAL CANCER
     Dosage: 5 MG/KG, Q2W
     Dates: start: 20071221
  2. OXALIPLATIN [Suspect]
     Indication: RECTAL CANCER
     Route: 041
  3. FLUOROURACIL [Suspect]
     Indication: RECTAL CANCER
     Route: 042
  4. LEUCOVORIN CALCIUM [Suspect]
     Indication: RECTAL CANCER
     Route: 041

REACTIONS (1)
  - INTERSTITIAL LUNG DISEASE [None]
